FAERS Safety Report 10163119 (Version 1)
Quarter: 2014Q2

REPORT INFORMATION
  Report Type: Spontaneous
  Country: US (occurrence: US)
  Receive Date: 20140509
  Receipt Date: 20140509
  Transmission Date: 20141212
  Serious: Yes (Life-Threatening)
  Sender: FDA-Public Use
  Company Number: US-GLAXOSMITHKLINE-A1071547A

PATIENT
  Age: 68 Year
  Sex: Female

DRUGS (11)
  1. VOTRIENT [Suspect]
     Indication: RENAL CANCER
     Dosage: 4TAB PER DAY
     Route: 048
     Dates: start: 201206, end: 201404
  2. DEXAMETHASONE [Concomitant]
  3. LACTULOSE ORAL [Concomitant]
  4. ZOFRAN [Concomitant]
  5. OXYCODONE [Concomitant]
  6. POLYETHYLENE GLYCOL [Concomitant]
  7. UNKNOWN MEDICATION [Concomitant]
  8. BACTRIM [Concomitant]
  9. CLINDAMYCIN [Concomitant]
  10. ALPRAZOLAM [Concomitant]
  11. MEGACE [Concomitant]

REACTIONS (1)
  - Disease progression [Unknown]
